FAERS Safety Report 10162608 (Version 1)
Quarter: 2014Q2

REPORT INFORMATION
  Report Type: Spontaneous
  Country: AT (occurrence: AT)
  Receive Date: 20140509
  Receipt Date: 20140509
  Transmission Date: 20141212
  Serious: Yes (Disabling)
  Sender: FDA-Public Use
  Company Number: AT-TEVA-480242ISR

PATIENT
  Age: 66 Year
  Sex: Male
  Weight: 90 kg

DRUGS (1)
  1. LISINOPRIL-HCT RATIOPHARM MITE- TABLETTEN [Suspect]
     Indication: HYPERTENSION
     Dates: start: 20131129

REACTIONS (2)
  - Macular oedema [Not Recovered/Not Resolved]
  - Metamorphopsia [Not Recovered/Not Resolved]
